FAERS Safety Report 5131782-1 (Version None)
Quarter: 2006Q4

REPORT INFORMATION
  Report Type: 
  Country: None (occurrence: None)
  Receive Date: 20061016
  Receipt Date: 20061002
  Transmission Date: 20070319
  Serious: Yes (Life-Threatening)
  Sender: FDA-Public Use
  Company Number: 2006-229

PATIENT
  Age: 33 Year
  Sex: Female

DRUGS (3)
  1. CITALOPRAM 20MG [Suspect]
     Indication: DEPRESSION
     Dosage: TAKE 1 TABLET PER DAY
     Dates: start: 20060829, end: 20060902
  2. DIAZEPAM [Concomitant]
  3. PROPRANOLOL [Concomitant]

REACTIONS (1)
  - SUICIDAL IDEATION [None]
